FAERS Safety Report 5276446-9 (Version None)
Quarter: 2007Q1

REPORT INFORMATION
  Report Type: 
  Country: None (occurrence: None)
  Receive Date: 20061213
  Receipt Date: 20040202
  Transmission Date: 20070707
  Serious: Yes (Hospitalization)
  Sender: FDA-Public Use
  Company Number: 2004UW01754

PATIENT
  Age: 68 Year
  Sex: Female

DRUGS (3)
  1. SEROQUEL [Suspect]
     Dosage: 100 MG BID PO
     Route: 048
  2. SEROQUEL [Suspect]
     Dosage: 300 MG DAIILY PO
     Route: 048
  3. OXYCONTIN [Concomitant]

REACTIONS (1)
  - DELIRIUM [None]
